FAERS Safety Report 10196844 (Version 1)
Quarter: 2014Q2

REPORT INFORMATION
  Report Type: Spontaneous
  Country: US (occurrence: None)
  Receive Date: 20140523
  Receipt Date: 20140523
  Transmission Date: 20141212
  Serious: Yes (Hospitalization)
  Sender: FDA-Public Use
  Company Number: None

PATIENT
  Age: 88 Year
  Sex: Female

DRUGS (14)
  1. HEPARIN [Suspect]
     Indication: ANTICOAGULANT THERAPY
     Dosage: VARIABLE, CONTINUOUS, IV?
     Route: 042
     Dates: start: 20140401, end: 20140406
  2. AMLODIPINE [Concomitant]
  3. ATORVASTATIN [Concomitant]
  4. DEXAMETHASONE [Concomitant]
  5. DOCUSATE [Concomitant]
  6. HEPARIN [Concomitant]
  7. INSULIN [Concomitant]
  8. LEVETIRACETAM [Concomitant]
  9. METOPROLOL [Concomitant]
  10. ONDANSETRON [Concomitant]
  11. POLVETHVLENE? [Concomitant]
  12. GLYCOL 3350 [Concomitant]
  13. RANITIDINE [Concomitant]
  14. SENNA [Concomitant]

REACTIONS (5)
  - Convulsion [None]
  - Fall [None]
  - Troponin increased [None]
  - Mental status changes [None]
  - Gastrointestinal haemorrhage [None]
